FAERS Safety Report 18901801 (Version 2)
Quarter: 2022Q1

REPORT INFORMATION
  Report Type: Report from Study
  Country: US (occurrence: US)
  Receive Date: 20210217
  Receipt Date: 20220314
  Transmission Date: 20220423
  Serious: No
  Sender: FDA-Public Use
  Company Number: US-NOVARTISTESTPH-NVSC2021US029275

PATIENT
  Age: 53 Year
  Sex: Female

DRUGS (1)
  1. GILENYA [Suspect]
     Active Substance: FINGOLIMOD HYDROCHLORIDE
     Indication: Multiple sclerosis
     Dosage: 0.5 MG, QD
     Route: 048

REACTIONS (4)
  - Colour blindness [Unknown]
  - Feeling hot [Unknown]
  - COVID-19 [Unknown]
  - Grief reaction [Unknown]

NARRATIVE: CASE EVENT DATE: 20201201
